FAERS Safety Report 4373720-5 (Version None)
Quarter: 2004Q2

REPORT INFORMATION
  Report Type: 
  Country: None (occurrence: None)
  Receive Date: 20040607
  Receipt Date: 20040607
  Transmission Date: 20050107
  Serious: Yes (Hospitalization)
  Sender: FDA-Public Use
  Company Number: None

PATIENT
  Sex: Female

DRUGS (2)
  1. CEFOXITIN [Suspect]
     Indication: PREOPERATIVE CARE
     Dosage: 2 GRAM ON CALL
     Dates: start: 20040516, end: 20040516
  2. CEFOXITIN [Suspect]
     Indication: POSTOPERATIVE CARE
     Dosage: 1 GRAM Q6H X 4DO
     Dates: start: 20040516, end: 20040518

REACTIONS (2)
  - NEUTROPENIA [None]
  - POST PROCEDURAL COMPLICATION [None]
